FAERS Safety Report 8464292-4 (Version None)
Quarter: 2012Q2

REPORT INFORMATION
  Report Type: 
  Country: None (occurrence: None)
  Receive Date: 20120625
  Receipt Date: 20120615
  Transmission Date: 20120825
  Serious: Yes (Hospitalization, Other)
  Sender: FDA-Public Use
  Company Number: US-ALLERGAN-1205637US

PATIENT
  Age: 89 Year
  Sex: Female
  Weight: 65.76 kg

DRUGS (4)
  1. PLAVIX [Concomitant]
     Indication: PRODUCT USED FOR UNKNOWN INDICATION
  2. LEVOTHYROXINE [Concomitant]
     Indication: PRODUCT USED FOR UNKNOWN INDICATION
  3. TRAVATAN Z [Concomitant]
     Indication: PRODUCT USED FOR UNKNOWN INDICATION
     Dosage: UNK
     Route: 065
     Dates: start: 20120402
  4. COMBIGAN [Suspect]
     Indication: GLAUCOMA
     Dosage: BID
     Route: 047
     Dates: start: 20120402, end: 20120417

REACTIONS (11)
  - OVERDOSE [None]
  - DEHYDRATION [None]
  - INCORRECT DOSE ADMINISTERED [None]
  - TRANSIENT ISCHAEMIC ATTACK [None]
  - ASTHENIA [None]
  - DRY MOUTH [None]
  - SPEECH DISORDER [None]
  - SWOLLEN TONGUE [None]
  - LETHARGY [None]
  - CONFUSIONAL STATE [None]
  - BRADYCARDIA [None]
